FAERS Safety Report 25817158 (Version 5)
Quarter: 2025Q4

REPORT INFORMATION
  Report Type: Spontaneous
  Country: CA (occurrence: CA)
  Receive Date: 20250918
  Receipt Date: 20251204
  Transmission Date: 20260118
  Serious: Yes (Hospitalization)
  Sender: PFIZER
  Company Number: CA-PFIZER INC-202500183530

PATIENT
  Age: 42 Year
  Sex: Male
  Weight: 75 kg

DRUGS (7)
  1. IXIFI [Suspect]
     Active Substance: INFLIXIMAB-QBTX
     Indication: Crohn^s disease
     Dosage: 700 MG, EVERY 4 WEEKS
     Route: 042
     Dates: start: 20250709
  2. IXIFI [Suspect]
     Active Substance: INFLIXIMAB-QBTX
     Dosage: 700 MG, EVERY 4 WEEKS
     Route: 042
     Dates: start: 20250807
  3. IXIFI [Suspect]
     Active Substance: INFLIXIMAB-QBTX
     Dosage: 700 MG, 8 WEEKS (EVERY 4 WEEKS)
     Route: 042
     Dates: start: 20251002
  4. IXIFI [Suspect]
     Active Substance: INFLIXIMAB-QBTX
     Dosage: 700 MG, EVERY 4 WEEKS
     Route: 042
     Dates: start: 20251030
  5. IXIFI [Suspect]
     Active Substance: INFLIXIMAB-QBTX
     Dosage: 700 MG, EVERY 4 WEEKS
     Route: 042
     Dates: start: 20251127
  6. METHOTREXATE SODIUM [Concomitant]
     Active Substance: METHOTREXATE SODIUM
     Dosage: 1 DF, UNKNOWN DOSAGE INFO
     Dates: start: 20240704
  7. METHOTREXATE SODIUM [Concomitant]
     Active Substance: METHOTREXATE SODIUM
     Dosage: 1 DF, UNKNOWN DOSAGE INFO
     Dates: start: 20250704

REACTIONS (3)
  - Asthenia [Recovering/Resolving]
  - Malaise [Recovering/Resolving]
  - Condition aggravated [Recovering/Resolving]

NARRATIVE: CASE EVENT DATE: 20250101
